FAERS Safety Report 11322090 (Version 2)
Quarter: 2015Q3

REPORT INFORMATION
  Report Type: Report from Study
  Country: MX (occurrence: MX)
  Receive Date: 20150729
  Receipt Date: 20150803
  Transmission Date: 20151125
  Serious: No
  Sender: FDA-Public Use
  Company Number: MX-ABBVIE-15K-107-1431945-00

PATIENT
  Age: 67 Year
  Sex: Male
  Weight: 85 kg

DRUGS (3)
  1. INDAFLEX [Concomitant]
     Indication: PAIN
     Dosage: 2.5% IN 40 G, EVERY 24 HOURS (AT NIGHT)
     Route: 061
     Dates: start: 20150209
  2. ANTALGIN [Concomitant]
     Indication: PAIN
     Route: 048
     Dates: start: 2013
  3. HUMIRA [Suspect]
     Active Substance: ADALIMUMAB
     Indication: ANKYLOSING SPONDYLITIS
     Route: 058
     Dates: start: 2009

REACTIONS (6)
  - Joint injury [Not Recovered/Not Resolved]
  - Muscle rigidity [Not Recovered/Not Resolved]
  - Road traffic accident [Recovering/Resolving]
  - Traumatic haematoma [Recovering/Resolving]
  - Limb injury [Recovering/Resolving]
  - Nuchal rigidity [Not Recovered/Not Resolved]

NARRATIVE: CASE EVENT DATE: 20150626
